FAERS Safety Report 17799853 (Version 1)
Quarter: 2020Q2

REPORT INFORMATION
  Report Type: Spontaneous
  Country: FR (occurrence: FR)
  Receive Date: 20200518
  Receipt Date: 20200518
  Transmission Date: 20200714
  Serious: Yes (Hospitalization)
  Sender: FDA-Public Use
  Company Number: FR-MYLANLABS-2020M1048270

PATIENT
  Age: 57 Year
  Sex: Female
  Weight: 115 kg

DRUGS (1)
  1. IBUPROFEN MYLAN 400 MG [Suspect]
     Active Substance: IBUPROFEN
     Indication: VIRAL INFECTION
     Dosage: 3 DOSAGE FORM, QD
     Route: 048
     Dates: start: 20200312, end: 20200314

REACTIONS (1)
  - Condition aggravated [Recovering/Resolving]

NARRATIVE: CASE EVENT DATE: 20200314
